APPROVED DRUG PRODUCT: VECURONIUM BROMIDE
Active Ingredient: VECURONIUM BROMIDE
Strength: 20MG/VIAL
Dosage Form/Route: INJECTABLE;INJECTION
Application: A090243 | Product #002 | TE Code: AP
Applicant: MYLAN LABORATORIES LTD
Approved: May 11, 2010 | RLD: No | RS: No | Type: RX